FAERS Safety Report 8341709-7 (Version None)
Quarter: 2012Q2

REPORT INFORMATION
  Report Type: 
  Country: None (occurrence: None)
  Receive Date: 20120507
  Receipt Date: 20120427
  Transmission Date: 20120825
  Serious: Yes (Hospitalization, Other)
  Sender: FDA-Public Use
  Company Number: PHHY2012JP029854

PATIENT
  Sex: Female
  Weight: 47 kg

DRUGS (11)
  1. EXFORGE [Suspect]
     Indication: HYPERTENSION
     Dosage: 1 DF, DAILY
     Route: 048
     Dates: start: 20110325, end: 20120301
  2. AMARYL [Concomitant]
     Indication: DIABETES MELLITUS
     Dosage: 0.5 MG, UNK
     Route: 048
     Dates: start: 20120204, end: 20120317
  3. JANUVIA [Concomitant]
     Indication: DIABETES MELLITUS
     Dosage: 50 MG, UNK
     Route: 048
     Dates: start: 20110128, end: 20120204
  4. MIYA-BM [Concomitant]
     Indication: CONSTIPATION
     Dosage: 20 MG, UNK
     Route: 048
     Dates: start: 20110809
  5. WARFARIN SODIUM [Concomitant]
     Indication: VENOUS THROMBOSIS
     Dosage: 1 MG, UNK
     Route: 048
     Dates: start: 20111215
  6. EXFORGE [Suspect]
     Dosage: 1 DF,DAILY
     Route: 048
     Dates: start: 20120301, end: 20120405
  7. LASIX [Concomitant]
     Indication: CARDIAC FAILURE
     Dosage: 40 MG, UNK
     Route: 048
     Dates: start: 20081127
  8. FERROUS CITRATE [Concomitant]
     Indication: IRON DEFICIENCY ANAEMIA
     Dosage: 25 MG, UNK
     Route: 048
     Dates: start: 20090924
  9. BIOTIN [Concomitant]
     Indication: ECZEMA
     Dosage: 3 MG, UNK
     Route: 048
     Dates: start: 20120114
  10. FEBUXOSTAT [Concomitant]
     Indication: HYPERURICAEMIA
     Dosage: 10 MG, UNK
     Route: 048
     Dates: start: 20110715
  11. MAGMITT [Concomitant]
     Indication: CONSTIPATION
     Dosage: 500 MG, UNK
     Route: 048
     Dates: start: 20110809

REACTIONS (8)
  - NAUSEA [None]
  - SEPSIS [None]
  - DERMATITIS BULLOUS [None]
  - BLISTER [None]
  - PRURITUS GENERALISED [None]
  - RASH [None]
  - PYREXIA [None]
  - VOMITING [None]
